FAERS Safety Report 7765527-3 (Version None)
Quarter: 2011Q3

REPORT INFORMATION
  Report Type: 
  Country: None (occurrence: None)
  Receive Date: 20110921
  Receipt Date: 20110912
  Transmission Date: 20111222
  Serious: Yes (Death, Hospitalization, Other)
  Sender: FDA-Public Use
  Company Number: DE-ABBOTT-11P-062-0847397-00

PATIENT
  Sex: Female

DRUGS (22)
  1. HUMIRA [Suspect]
     Dates: start: 20040801, end: 20041201
  2. RITUXIMAB [Concomitant]
     Dates: start: 20101125
  3. METHOTREXATE [Concomitant]
     Dosage: WEEKLY, PREFILLED SYRINGE
     Dates: start: 20050101
  4. RITUXIMAB [Concomitant]
     Dates: start: 20080114
  5. RITUXIMAB [Concomitant]
     Dates: start: 20080904
  6. STEROID [Concomitant]
     Indication: PRODUCT USED FOR UNKNOWN INDICATION
  7. AVELOX [Concomitant]
     Indication: PRODUCT USED FOR UNKNOWN INDICATION
  8. CIPROFLOXACIN [Concomitant]
     Indication: PRODUCT USED FOR UNKNOWN INDICATION
  9. CEFTRIAXON [Concomitant]
     Indication: PRODUCT USED FOR UNKNOWN INDICATION
  10. COTRIM [Concomitant]
     Indication: PRODUCT USED FOR UNKNOWN INDICATION
  11. CEFTAZIDIM [Concomitant]
     Indication: PRODUCT USED FOR UNKNOWN INDICATION
  12. ZIENAM [Concomitant]
     Indication: PRODUCT USED FOR UNKNOWN INDICATION
  13. HUMIRA [Suspect]
     Indication: RHEUMATOID ARTHRITIS
     Route: 058
     Dates: start: 20050201, end: 20070401
  14. RITUXIMAB [Concomitant]
     Indication: PRODUCT USED FOR UNKNOWN INDICATION
     Dates: start: 20070401
  15. PIPERACILLIN AND TAZOBACTAM [Concomitant]
     Indication: PRODUCT USED FOR UNKNOWN INDICATION
  16. AMIODARONE HCL [Concomitant]
     Indication: PRODUCT USED FOR UNKNOWN INDICATION
  17. METHOTREXATE [Concomitant]
     Indication: PRODUCT USED FOR UNKNOWN INDICATION
     Dates: start: 20080214
  18. RITUXIMAB [Concomitant]
     Dates: start: 20100701
  19. RITUXIMAB [Concomitant]
     Dates: start: 20100801
  20. RITUXIMAB [Concomitant]
     Dates: start: 20100118
  21. GANCICLOVIR [Concomitant]
     Indication: CYTOMEGALOVIRUS INFECTION
     Route: 042
  22. AMIODARONE HCL [Concomitant]
     Indication: PRODUCT USED FOR UNKNOWN INDICATION

REACTIONS (20)
  - GASTROSTOMY TUBE INSERTION [None]
  - ESCHERICHIA SEPSIS [None]
  - STAPHYLOCOCCAL SEPSIS [None]
  - SURGERY [None]
  - POST PROCEDURAL HAEMATOMA [None]
  - TACHYARRHYTHMIA [None]
  - ALVEOLITIS [None]
  - IMPAIRED HEALING [None]
  - MECHANICAL VENTILATION [None]
  - SEPSIS [None]
  - BREAST CANCER [None]
  - ATRIAL FIBRILLATION [None]
  - UROSEPSIS [None]
  - ACUTE RESPIRATORY FAILURE [None]
  - NORMOCHROMIC NORMOCYTIC ANAEMIA [None]
  - PNEUMONIA [None]
  - THROMBOCYTOPENIA [None]
  - TRACHEOBRONCHITIS [None]
  - TRACHEAL DILATATION [None]
  - INTERSTITIAL LUNG DISEASE [None]
